FAERS Safety Report 10551433 (Version 1)
Quarter: 2014Q4

REPORT INFORMATION
  Report Type: Spontaneous
  Country: ES (occurrence: ES)
  Receive Date: 20141029
  Receipt Date: 20141029
  Transmission Date: 20150529
  Serious: Yes (Life-Threatening, Hospitalization)
  Sender: FDA-Public Use
  Company Number: ES-MALLINCKRODT-T201403793

PATIENT
  Age: 73 Year
  Sex: Female
  Weight: 75 kg

DRUGS (8)
  1. CARDYL [Concomitant]
     Active Substance: ATORVASTATIN CALCIUM
     Dosage: 10 MG, 1 TABLET/DAY
  2. EMCONCOR [Concomitant]
     Active Substance: BISOPROLOL FUMARATE
     Dosage: 5 MG, 1/2 TABLET/DAY
  3. ACOVIL [Concomitant]
     Active Substance: PHENIRAMINE
     Dosage: 2.5 (1/2 TABLET/DAY IF ARTERIAL PRESSURE IS OVER 140 MMHG)
  4. OPTIRAY 320 [Suspect]
     Active Substance: IOVERSOL
     Indication: ARTERIOGRAM
     Dosage: 150 ML, SINGLE
     Route: 013
     Dates: start: 20140903, end: 20140903
  5. TOPAMAX [Concomitant]
     Active Substance: TOPIRAMATE
     Dosage: 25 MG, 2 TABLETS/DAY
  6. PAROXETINE [Concomitant]
     Active Substance: PAROXETINE\PAROXETINE HYDROCHLORIDE
     Dosage: 20 MG, 1 TABLET/DAY
  7. SEDOTIME [Concomitant]
     Dosage: 2 TABLETS/DAY
  8. OPIREN [Concomitant]
     Active Substance: LANSOPRAZOLE
     Dosage: 30 MG, 1 TABLET/DAY

REACTIONS (5)
  - Headache [Recovered/Resolved]
  - Aphasia [Recovered/Resolved]
  - Incoherent [Recovered/Resolved]
  - Systolic hypertension [Recovered/Resolved]
  - Hypotonia [Recovered/Resolved]

NARRATIVE: CASE EVENT DATE: 20140903
